FAERS Safety Report 11680372 (Version 2)
Quarter: 2015Q4

REPORT INFORMATION
  Report Type: Spontaneous
  Country: US (occurrence: US)
  Receive Date: 20151027
  Receipt Date: 20151104
  Transmission Date: 20160304
  Serious: No
  Sender: FDA-Public Use
  Company Number: US-ELI_LILLY_AND_COMPANY-US201006001040

PATIENT
  Sex: Female

DRUGS (7)
  1. FORTEO [Suspect]
     Active Substance: TERIPARATIDE
     Indication: OSTEOPOROSIS
     Dosage: 20 UG, DAILY (1/D)
     Dates: start: 20100401
  2. FORTEO [Suspect]
     Active Substance: TERIPARATIDE
     Dosage: 20 UG, DAILY (1/D)
  3. FORTEO [Suspect]
     Active Substance: TERIPARATIDE
     Dosage: 20 UG, DAILY (1/D)
  4. FORTEO [Suspect]
     Active Substance: TERIPARATIDE
     Dosage: 20 UG, DAILY (1/D)
  5. FORTEO [Suspect]
     Active Substance: TERIPARATIDE
     Dosage: 20 UG, QD
  6. FORTEO [Suspect]
     Active Substance: TERIPARATIDE
     Dosage: 20 UG, DAILY (1/D)
  7. CALCIUM [Concomitant]
     Active Substance: CALCIUM

REACTIONS (13)
  - Back pain [Unknown]
  - Gastric disorder [Unknown]
  - Abdominal discomfort [Unknown]
  - Pain [Unknown]
  - Injury [Unknown]
  - Muscle spasms [Unknown]
  - Constipation [Unknown]
  - Bone pain [Unknown]
  - Pain in extremity [Unknown]
  - Pain in jaw [Recovered/Resolved]
  - Nausea [Recovering/Resolving]
  - Muscular weakness [Unknown]
  - Foot deformity [Not Recovered/Not Resolved]
